FAERS Safety Report 7888450-2 (Version None)
Quarter: 2011Q4

REPORT INFORMATION
  Report Type: 
  Country: None (occurrence: None)
  Receive Date: 20111103
  Receipt Date: 20111027
  Transmission Date: 20120403
  Serious: Yes (Other)
  Sender: FDA-Public Use
  Company Number: PHEH2011US07081

PATIENT
  Sex: Female

DRUGS (6)
  1. WELLBUTRIN SR [Concomitant]
     Dosage: 1 DF, QD
     Route: 048
  2. GILENYA [Suspect]
     Indication: RELAPSING-REMITTING MULTIPLE SCLEROSIS
     Dosage: 0.5 MG, DAILY
     Route: 048
     Dates: start: 20111006
  3. PROZAC [Concomitant]
     Dosage: 1 DF, QD
     Route: 048
  4. DEXTROAMPHETAMINE [Concomitant]
     Dosage: 1 DF, BID
  5. AMANTADINE HCL [Concomitant]
     Dosage: 1 DF, BID
     Route: 048
  6. LIDODERM [Concomitant]

REACTIONS (34)
  - FATIGUE [None]
  - CONSTIPATION [None]
  - DYSPEPSIA [None]
  - NECK PAIN [None]
  - CENTRAL NERVOUS SYSTEM LESION [None]
  - MUSCULAR WEAKNESS [None]
  - TEMPERATURE INTOLERANCE [None]
  - EAR PAIN [None]
  - ALOPECIA [None]
  - FALL [None]
  - ATAXIA [None]
  - HYPOAESTHESIA [None]
  - PSYCHIATRIC SYMPTOM [None]
  - BACK PAIN [None]
  - GAIT SPASTIC [None]
  - MUSCULOSKELETAL STIFFNESS [None]
  - HEADACHE [None]
  - BALANCE DISORDER [None]
  - GAIT DISTURBANCE [None]
  - PARAESTHESIA [None]
  - NEUROGENIC BLADDER [None]
  - MEMORY IMPAIRMENT [None]
  - CRYING [None]
  - SEASONAL ALLERGY [None]
  - DEAFNESS [None]
  - POLLAKIURIA [None]
  - BONE DISORDER [None]
  - BLINDNESS [None]
  - MULTIPLE SCLEROSIS [None]
  - DYSPHONIA [None]
  - JOINT SWELLING [None]
  - DYSPHAGIA [None]
  - PALPITATIONS [None]
  - DYSPNOEA [None]
